FAERS Safety Report 4698600-7 (Version None)
Quarter: 2005Q2

REPORT INFORMATION
  Report Type: 
  Country: None (occurrence: None)
  Receive Date: 20050623
  Receipt Date: 20040521
  Transmission Date: 20051028
  Serious: Yes (Hospitalization)
  Sender: FDA-Public Use
  Company Number: NUBN20040010

PATIENT
  Age: 53 Year
  Sex: Male

DRUGS (11)
  1. NUBAIN [Suspect]
     Indication: PAIN
     Dosage: 10 MG ONCE IM
     Route: 030
     Dates: start: 20040505, end: 20040505
  2. METHADONE HCL [Suspect]
     Indication: PAIN
     Dosage: 40 MG BID PO
     Route: 048
     Dates: end: 20040506
  3. DICLOFENAC SODIUM [Concomitant]
  4. CO-PROXAMOL [Concomitant]
  5. DIAZEPAM [Concomitant]
  6. LANSOPRAZOLE [Concomitant]
  7. MILPAR [Concomitant]
  8. OLANZAPINE [Concomitant]
  9. DEXAMETHASONE [Concomitant]
  10. LORAZEPAM [Concomitant]
  11. FLUOXETINE [Concomitant]

REACTIONS (2)
  - DRUG INEFFECTIVE [None]
  - DRUG INTERACTION [None]
